FAERS Safety Report 5260968-0 (Version None)
Quarter: 2007Q1

REPORT INFORMATION
  Report Type: 
  Country: None (occurrence: None)
  Receive Date: 20070309
  Receipt Date: 20070226
  Transmission Date: 20070707
  Serious: Yes (Other)
  Sender: FDA-Public Use
  Company Number: US-NOVOPROD-252273

PATIENT
  Sex: Female
  Weight: 95.238 kg

DRUGS (8)
  1. ACTIVELLA [Suspect]
     Indication: MENOPAUSAL SYMPTOMS
     Dosage: 1 MG/0.5 MG QD
     Dates: start: 20010827, end: 20030614
  2. ACTIVELLA [Suspect]
  3. MEDROXYPROGESTERONE [Suspect]
     Indication: MENOPAUSAL SYMPTOMS
     Dosage: 10 MG, QD
     Dates: start: 20010101
  4. EFFEXOR XR [Concomitant]
     Indication: DEPRESSION
     Dosage: 150 MG, UNK
     Dates: start: 20030801
  5. EFFEXOR XR [Concomitant]
     Indication: MENOPAUSAL SYMPTOMS
  6. LEVOTHYROXINE                      /00068002/ [Concomitant]
     Indication: THYROID DISORDER
     Dosage: .075 MG, UNK
     Dates: start: 20020101
  7. FLEXERIL [Concomitant]
     Indication: ILL-DEFINED DISORDER
     Dosage: 10 MG, UNK
     Dates: start: 20010101
  8. NAPROXEN [Concomitant]
     Indication: ILL-DEFINED DISORDER
     Dosage: 375 MG, UNK
     Dates: start: 20010101

REACTIONS (1)
  - BREAST CANCER [None]
